FAERS Safety Report 6057881-8 (Version None)
Quarter: 2009Q1

REPORT INFORMATION
  Report Type: 
  Country: None (occurrence: None)
  Receive Date: 20090126
  Receipt Date: 20090112
  Transmission Date: 20090719
  Serious: Yes (Hospitalization, Other)
  Sender: FDA-Public Use
  Company Number: 55998

PATIENT
  Age: 59 Year
  Sex: Female

DRUGS (1)
  1. METHOTREXATE [Suspect]
     Indication: PSORIASIS
     Dosage: 25MG, ORALLY

REACTIONS (10)
  - BLOOD IMMUNOGLOBULIN E INCREASED [None]
  - DYSPHAGIA [None]
  - GASTROINTESTINAL INFLAMMATION [None]
  - MEDICATION ERROR [None]
  - MOUTH ULCERATION [None]
  - MUCOSAL INFLAMMATION [None]
  - OVERDOSE [None]
  - PANCYTOPENIA [None]
  - RENAL FAILURE ACUTE [None]
  - SKIN LESION [None]
